FAERS Safety Report 15255696 (Version 1)
Quarter: 2018Q3

REPORT INFORMATION
  Report Type: Report from Study
  Country: US (occurrence: US)
  Receive Date: 20180808
  Receipt Date: 20180808
  Transmission Date: 20181010
  Serious: Yes (Hospitalization)
  Sender: FDA-Public Use
  Company Number: US-MYLANLABS-2018M1059653

PATIENT
  Age: 67 Year
  Sex: Female
  Weight: 122.5 kg

DRUGS (10)
  1. ACETAMINOPHEN. [Concomitant]
     Active Substance: ACETAMINOPHEN
     Indication: ARTHRITIS
  2. BIOTIN [Concomitant]
     Active Substance: BIOTIN
     Indication: ALOPECIA
  3. CYANOCOBALAMIN. [Concomitant]
     Active Substance: CYANOCOBALAMIN
     Indication: PRODUCT USED FOR UNKNOWN INDICATION
  4. FAMOTIDINE. [Concomitant]
     Active Substance: FAMOTIDINE
     Indication: PRODUCT USED FOR UNKNOWN INDICATION
  5. PREDNISONE. [Suspect]
     Active Substance: PREDNISONE
     Indication: BACK PAIN
     Dosage: UNK
     Dates: start: 20180516, end: 20180517
  6. DOCUSATE CALCIUM. [Concomitant]
     Active Substance: DOCUSATE CALCIUM
     Indication: CONSTIPATION
  7. ATORVASTATIN [Concomitant]
     Active Substance: ATORVASTATIN
     Indication: HYPERLIPIDAEMIA
  8. CARBAMAZEPINE. [Concomitant]
     Active Substance: CARBAMAZEPINE
     Indication: DIABETIC NEUROPATHY
  9. COLECALCIFEROL [Concomitant]
     Active Substance: CHOLECALCIFEROL
     Indication: PRODUCT USED FOR UNKNOWN INDICATION
  10. GABAPENTIN. [Concomitant]
     Active Substance: GABAPENTIN
     Indication: DIABETIC NEUROPATHY

REACTIONS (7)
  - Gait disturbance [Recovered/Resolved]
  - Memory impairment [Unknown]
  - Vision blurred [Unknown]
  - Aphasia [Recovered/Resolved]
  - Dizziness [Recovered/Resolved]
  - Diplopia [Unknown]
  - Reading disorder [Unknown]

NARRATIVE: CASE EVENT DATE: 20180518
